FAERS Safety Report 5601151-6 (Version None)
Quarter: 2008Q1

REPORT INFORMATION
  Report Type: 
  Country: None (occurrence: None)
  Receive Date: 20080122
  Receipt Date: 20080122
  Transmission Date: 20080703
  Serious: Yes (Hospitalization)
  Sender: FDA-Public Use
  Company Number: None

PATIENT
  Sex: Male
  Weight: 88 kg

DRUGS (2)
  1. CLOFARABINE/CAMPATH [Suspect]
     Indication: STEM CELL TRANSPLANT
     Dosage: 84 MG/ 20 MG DAILY IV DRIP
     Route: 041
     Dates: start: 20071221, end: 20071225
  2. MELPHALAN [Suspect]
     Dosage: 294 DAILY IV DRIP
     Route: 041
     Dates: start: 20071226, end: 20071226

REACTIONS (7)
  - AORTIC DILATATION [None]
  - LOBAR PNEUMONIA [None]
  - OXYGEN SATURATION DECREASED [None]
  - PARAINFLUENZAE VIRUS INFECTION [None]
  - PLEURAL EFFUSION [None]
  - PULMONARY EMBOLISM [None]
  - TACHYPNOEA [None]
